FAERS Safety Report 5964389-4 (Version None)
Quarter: 2008Q4

REPORT INFORMATION
  Report Type: 
  Country: None (occurrence: None)
  Receive Date: 20081124
  Receipt Date: 20081114
  Transmission Date: 20090506
  Serious: Yes (Other)
  Sender: FDA-Public Use
  Company Number: CH-PFIZER INC-2008096693

PATIENT
  Sex: Male

DRUGS (2)
  1. LYRICA [Suspect]
  2. OPIOIDS [Concomitant]

REACTIONS (3)
  - ACCIDENTAL OVERDOSE [None]
  - AGITATION [None]
  - PSYCHOTIC DISORDER [None]
